FAERS Safety Report 5613190-X (Version None)
Quarter: 2008Q1

REPORT INFORMATION
  Report Type: 
  Country: None (occurrence: None)
  Receive Date: 20080129
  Receipt Date: 20080110
  Transmission Date: 20080703
  Serious: Yes (Life-Threatening)
  Sender: FDA-Public Use
  Company Number: 2008US000246

PATIENT
  Age: 28 Year
  Sex: Female

DRUGS (3)
  1. AMBISOME [Suspect]
     Indication: BRONCHOPULMONARY ASPERGILLOSIS
     Dosage: 150 MG, UID/QD, IV NOS
     Route: 042
     Dates: start: 20070220, end: 20070220
  2. POLARAMINE [Concomitant]
  3. HYDROCORTISONE HYDROGEN SUCCINATE (HYDROCORTISONE HYDROGEN SUCCINATE) [Concomitant]

REACTIONS (1)
  - BRONCHOSPASM [None]
